FAERS Safety Report 14819062 (Version 1)
Quarter: 2018Q2

REPORT INFORMATION
  Report Type: Spontaneous
  Country: CA (occurrence: CA)
  Receive Date: 20180427
  Receipt Date: 20180427
  Transmission Date: 20180711
  Serious: Yes (Death)
  Sender: FDA-Public Use
  Company Number: CA-TEVA-2018-CA-884398

PATIENT
  Age: 31 Year
  Sex: Female
  Weight: 73 kg

DRUGS (15)
  1. BUSCOPAN [Concomitant]
     Active Substance: BUTYLSCOPOLAMINE BROMIDE
  2. HYDROXYZINE [Concomitant]
     Active Substance: HYDROXYZINE HYDROCHLORIDE
  3. RATIO-LENOLTEC NO 3 [Concomitant]
     Active Substance: ACETAMINOPHEN\CAFFEINE\CODEINE PHOSPHATE
  4. DIAZEPAM. [Concomitant]
     Active Substance: DIAZEPAM
  5. VITAMIN B12 [Concomitant]
     Active Substance: CYANOCOBALAMIN
  6. OXYCODONE [Suspect]
     Active Substance: OXYCODONE
     Route: 065
  7. AMOXICILLIN. [Concomitant]
     Active Substance: AMOXICILLIN
  8. GABAPENTIN. [Concomitant]
     Active Substance: GABAPENTIN
  9. LEVOFLOXACIN. [Concomitant]
     Active Substance: LEVOFLOXACIN
  10. METRONIDAZOLE. [Concomitant]
     Active Substance: METRONIDAZOLE
  11. MIRTAZAPINE. [Concomitant]
     Active Substance: MIRTAZAPINE
  12. COCAINE [Suspect]
     Active Substance: COCAINE
     Route: 065
  13. CLONAZEPAM. [Concomitant]
     Active Substance: CLONAZEPAM
  14. MEDROXYPROGESTERONE [Concomitant]
     Active Substance: MEDROXYPROGESTERONE
  15. NAPROXEN. [Concomitant]
     Active Substance: NAPROXEN

REACTIONS (2)
  - Postmortem blood drug level abnormal [Fatal]
  - Toxicity to various agents [Fatal]
